FAERS Safety Report 18510433 (Version 1)
Quarter: 2020Q4

REPORT INFORMATION
  Report Type: Spontaneous
  Country: US (occurrence: US)
  Receive Date: 20201116
  Receipt Date: 20201116
  Transmission Date: 20210114
  Serious: Yes (Hospitalization)
  Sender: FDA-Public Use
  Company Number: None

PATIENT
  Age: 64 Year
  Sex: Female

DRUGS (1)
  1. INLYTA [Suspect]
     Active Substance: AXITINIB
     Indication: RENAL CANCER
     Dosage: ?          OTHER DOSE:TAKE 3 TABS;?
     Route: 048

REACTIONS (3)
  - Surgery [None]
  - Therapy interrupted [None]
  - Fatigue [None]

NARRATIVE: CASE EVENT DATE: 20201113
